FAERS Safety Report 9902514 (Version 1)
Quarter: 2014Q1

REPORT INFORMATION
  Report Type: Spontaneous
  Country: US (occurrence: US)
  Receive Date: 20140217
  Receipt Date: 20140217
  Transmission Date: 20141002
  Serious: No
  Sender: FDA-Public Use
  Company Number: US-GILEAD-2011-0043995

PATIENT
  Age: 74 Year
  Sex: Male

DRUGS (2)
  1. LETAIRIS [Suspect]
     Indication: PRODUCT USED FOR UNKNOWN INDICATION
     Route: 048
     Dates: start: 20080425
  2. TYVASO [Concomitant]

REACTIONS (4)
  - Hypotension [Unknown]
  - Oxygen saturation decreased [Unknown]
  - Blood glucose increased [Unknown]
  - Dyspnoea [Unknown]
